FAERS Safety Report 5712209-5 (Version None)
Quarter: 2008Q2

REPORT INFORMATION
  Report Type: 
  Country: None (occurrence: None)
  Receive Date: 20080422
  Receipt Date: 20080417
  Transmission Date: 20081010
  Serious: Yes (Death)
  Sender: FDA-Public Use
  Company Number: DE-BAYER-200814101GPV

PATIENT
  Age: 75 Year
  Sex: Male
  Weight: 82 kg

DRUGS (5)
  1. NEXAVAR [Suspect]
     Indication: HEPATIC NEOPLASM MALIGNANT
     Dosage: TOTAL DAILY DOSE: 400 MG  UNIT DOSE: 200 MG
     Route: 048
     Dates: start: 20071015
  2. CARBIMAZOL [Concomitant]
     Indication: HYPERTHYROIDISM
     Dosage: TOTAL DAILY DOSE: 10 MG
     Route: 065
     Dates: start: 20070101
  3. NEOZYM (ENZYMES NOS) [Concomitant]
     Indication: DRUG USE FOR UNKNOWN INDICATION
     Route: 065
     Dates: start: 20070901
  4. CEFASEL [Concomitant]
     Indication: DRUG USE FOR UNKNOWN INDICATION
     Route: 065
     Dates: start: 20070118
  5. PANTOZOL [Concomitant]
     Indication: GASTRITIS
     Route: 065
     Dates: start: 20070605

REACTIONS (7)
  - BLISTER [None]
  - BONE PAIN [None]
  - DERMATITIS EXFOLIATIVE [None]
  - HYPERAEMIA [None]
  - KERATOACANTHOMA [None]
  - PAIN IN EXTREMITY [None]
  - PULMONARY EMBOLISM [None]
